FAERS Safety Report 5673015-3 (Version None)
Quarter: 2008Q1

REPORT INFORMATION
  Report Type: 
  Country: None (occurrence: None)
  Receive Date: 20080319
  Receipt Date: 20080317
  Transmission Date: 20080703
  Serious: Yes (Hospitalization)
  Sender: FDA-Public Use
  Company Number: B0513211A

PATIENT
  Age: 19 Year
  Sex: Female

DRUGS (1)
  1. AUGMENTIN '125' [Suspect]
     Indication: DRUG USE FOR UNKNOWN INDICATION
     Route: 065

REACTIONS (5)
  - ANAPHYLACTIC REACTION [None]
  - BURNING SENSATION [None]
  - HYPOTENSION [None]
  - SWOLLEN TONGUE [None]
  - SYNCOPE [None]
